FAERS Safety Report 6752057-0 (Version None)
Quarter: 2010Q2

REPORT INFORMATION
  Report Type: 
  Country: None (occurrence: None)
  Receive Date: 20100602
  Receipt Date: 20100519
  Transmission Date: 20101027
  Serious: Yes (Hospitalization)
  Sender: FDA-Public Use
  Company Number: US-ELI_LILLY_AND_COMPANY-US201005006611

PATIENT
  Sex: Male

DRUGS (20)
  1. FORTEO [Suspect]
     Dosage: UNK, UNK
     Dates: start: 20090101, end: 20100101
  2. FORTEO [Suspect]
     Dosage: UNK, UNK
     Dates: start: 20100101
  3. GABAPENTIN [Concomitant]
     Dosage: 100 MG, 4/D
  4. PROPRANOLOL [Concomitant]
     Dosage: 40 MG, 3/D
  5. PRIMIDONE [Concomitant]
     Dosage: 50 MG, 3/D
  6. MIRAPEX [Concomitant]
     Dosage: 0.5 MG, 2/D
  7. NEXIUM [Concomitant]
     Dosage: 40 MG, 2/D
  8. XANAX [Concomitant]
     Dosage: 1 MG, EACH EVENING
  9. XANAX [Concomitant]
     Dosage: 0.5 MG, 4/D
  10. LASIX [Concomitant]
     Dosage: 20 MG, 2/D
  11. ADVAIR DISKUS 100/50 [Concomitant]
     Dosage: 1 D/F, 2/D
  12. LORTAB [Concomitant]
     Indication: PAIN
     Dosage: UNK, AS NEEDED
  13. FLEXERIL [Concomitant]
     Dosage: 0.5 MG, 3/D
  14. COUMADIN [Concomitant]
     Dosage: 5 MG, 5/W
  15. COUMADIN [Concomitant]
     Dosage: 2.5 MG, 2/W
  16. CALCIUM CARBONATE [Concomitant]
     Dosage: 1000 U, DAILY (1/D)
  17. VITAMIN E [Concomitant]
     Dosage: UNK, DAILY (1/D)
  18. VITAMIN B6 [Concomitant]
     Dosage: UNK, DAILY (1/D)
  19. VITAMIN B-12 [Concomitant]
     Dosage: UNK, DAILY (1/D)
  20. OXYGEN [Concomitant]
     Dosage: UNK, AS NEEDED

REACTIONS (4)
  - CARDIAC FAILURE CONGESTIVE [None]
  - CHRONIC OBSTRUCTIVE PULMONARY DISEASE [None]
  - DYSPNOEA [None]
  - LUNG DISORDER [None]
